FAERS Safety Report 16673945 (Version 1)
Quarter: 2019Q3

REPORT INFORMATION
  Report Type: Report from Study
  Country: FR (occurrence: FR)
  Receive Date: 20190806
  Receipt Date: 20190806
  Transmission Date: 20191004
  Serious: Yes (Other)
  Sender: FDA-Public Use
  Company Number: FR-JNJFOC-20190742069

PATIENT
  Age: 62 Year
  Sex: Male

DRUGS (11)
  1. HYDROCORTISONE. [Concomitant]
     Active Substance: HYDROCORTISONE
  2. TELMISARTAN. [Concomitant]
     Active Substance: TELMISARTAN
  3. STELARA [Suspect]
     Active Substance: USTEKINUMAB
     Route: 058
     Dates: start: 20150828, end: 20180717
  4. METHOTREXATE. [Concomitant]
     Active Substance: METHOTREXATE
     Route: 065
     Dates: start: 2000, end: 2002
  5. KETODERM                           /00532501/ [Concomitant]
     Active Substance: KETOCONAZOLE
     Route: 065
     Dates: start: 201807
  6. IBUPROFENE [Concomitant]
     Active Substance: IBUPROFEN
  7. BETAMETHASONE. [Concomitant]
     Active Substance: BETAMETHASONE
  8. PARACETAMOL [Concomitant]
     Active Substance: ACETAMINOPHEN
  9. STELARA [Suspect]
     Active Substance: USTEKINUMAB
     Indication: PSORIASIS
     Route: 058
     Dates: start: 20140212, end: 20150828
  10. STELARA [Suspect]
     Active Substance: USTEKINUMAB
     Route: 058
     Dates: start: 20180717, end: 20190626
  11. HUMIRA [Concomitant]
     Active Substance: ADALIMUMAB
     Route: 058
     Dates: start: 201104, end: 20120215

REACTIONS (3)
  - Inappropriate schedule of product administration [Unknown]
  - Malignant glioma [Not Recovered/Not Resolved]
  - Off label use [Unknown]

NARRATIVE: CASE EVENT DATE: 20190624
